FAERS Safety Report 9710268 (Version 1)
Quarter: 2013Q4

REPORT INFORMATION
  Report Type: Spontaneous
  Country: US (occurrence: US)
  Receive Date: 20131126
  Receipt Date: 20131126
  Transmission Date: 20140711
  Serious: No
  Sender: FDA-Public Use
  Company Number: US-BRISTOL-MYERS SQUIBB COMPANY-18749341

PATIENT
  Age: 56 Year
  Sex: Male
  Weight: 140.59 kg

DRUGS (1)
  1. BYETTA [Suspect]
     Route: 058
     Dates: start: 2009, end: 20130403

REACTIONS (1)
  - Weight decreased [Unknown]
